FAERS Safety Report 5319462-0 (Version None)
Quarter: 2007Q2

REPORT INFORMATION
  Report Type: 
  Country: None (occurrence: None)
  Receive Date: 20070508
  Receipt Date: 20070426
  Transmission Date: 20071010
  Serious: Yes (Hospitalization, Other)
  Sender: FDA-Public Use
  Company Number: FR-PFIZER INC-2007028474

PATIENT
  Sex: Female

DRUGS (6)
  1. DOSTINEX [Suspect]
     Indication: PROLACTINOMA
     Route: 048
  2. DOSTINEX [Suspect]
     Indication: PITUITARY TUMOUR BENIGN
  3. LEVOTHYROXINE SODIUM [Concomitant]
     Indication: HYPOTHYROIDISM
     Route: 048
  4. DOLIPRANE [Concomitant]
     Indication: HEADACHE
     Dosage: DAILY DOSE:1GRAM
     Route: 048
     Dates: start: 20070326, end: 20070327
  5. ACUPAN [Concomitant]
     Indication: HEADACHE
     Route: 048
     Dates: start: 20070327, end: 20070327
  6. XANAX [Concomitant]
     Indication: ANXIETY
     Route: 048
     Dates: start: 20070327, end: 20070329

REACTIONS (3)
  - MANIA [None]
  - PERSECUTORY DELUSION [None]
  - PSYCHOTIC DISORDER [None]
